FAERS Safety Report 17033063 (Version 4)
Quarter: 2021Q1

REPORT INFORMATION
  Report Type: Report from Study
  Country: US (occurrence: US)
  Receive Date: 20191114
  Receipt Date: 20210311
  Transmission Date: 20210419
  Serious: No
  Sender: FDA-Public Use
  Company Number: NVSC2019US035602

PATIENT
  Sex: Male

DRUGS (2)
  1. ENTRESTO [Suspect]
     Active Substance: SACUBITRIL\VALSARTAN
     Indication: CARDIAC FAILURE
     Dosage: 50 MG, BID
     Route: 048
  2. ENTRESTO [Suspect]
     Active Substance: SACUBITRIL\VALSARTAN
     Dosage: 50 MG, BID
     Route: 065

REACTIONS (6)
  - Abdominal distension [Unknown]
  - Dyspnoea [Unknown]
  - Therapeutic response unexpected [Recovered/Resolved]
  - Gait disturbance [Recovered/Resolved]
  - Product dose omission issue [Unknown]
  - Asthenia [Unknown]
